FAERS Safety Report 10075947 (Version 1)
Quarter: 2014Q2

REPORT INFORMATION
  Report Type: Spontaneous
  Country: US (occurrence: None)
  Receive Date: 20140411
  Receipt Date: 20140411
  Transmission Date: 20141212
  Serious: Yes (Disabling, Other)
  Sender: FDA-Public Use
  Company Number: None

PATIENT
  Age: 71 Year
  Sex: Female
  Weight: 80.74 kg

DRUGS (15)
  1. METHENAMINE HIPPURATE [Suspect]
     Indication: CYSTITIS
     Dosage: 1 GRAM 1 TABLET TWICE DAILY BY MOUTH
     Route: 048
     Dates: start: 201302, end: 201303
  2. METHENAMINE HIPPURATE [Suspect]
     Indication: BACTERIAL INFECTION
     Dosage: 1 GRAM 1 TABLET TWICE DAILY BY MOUTH
     Route: 048
     Dates: start: 201302, end: 201303
  3. CARDIZEM [Concomitant]
  4. SINGULAIR [Concomitant]
  5. SYNTHROID [Concomitant]
  6. AMITRIPTILIN [Concomitant]
  7. BONIVA [Concomitant]
  8. POTASSIUM [Concomitant]
  9. CALTRATE [Concomitant]
  10. NEILMED SINUS RINSE KIT [Concomitant]
  11. EYE VITAMINS [Concomitant]
  12. VITAMIN D [Concomitant]
  13. IPRAPROPIUM [Concomitant]
  14. DERMOTIC OIL [Concomitant]
  15. BACTROBAN [Concomitant]

REACTIONS (8)
  - Dyspepsia [None]
  - Decreased appetite [None]
  - Madarosis [None]
  - Weight decreased [None]
  - Madarosis [None]
  - Product odour abnormal [None]
  - Product tampering [None]
  - Product quality issue [None]
